FAERS Safety Report 8855105 (Version 1)
Quarter: 2012Q4

REPORT INFORMATION
  Report Type: 
  Country: US (occurrence: US)
  Receive Date: 20121023
  Receipt Date: 20121023
  Transmission Date: 20130627
  Serious: No
  Sender: FDA-Public Use
  Company Number: US-ASTRAZENECA-2012SE77305

PATIENT
  Sex: Female

DRUGS (3)
  1. BRILINTA [Suspect]
     Route: 048
  2. INSULIN [Concomitant]
  3. THYROID MEDICATION [Concomitant]

REACTIONS (4)
  - Constipation [Unknown]
  - Dry mouth [Unknown]
  - Fluid retention [Unknown]
  - Myalgia [Unknown]
